FAERS Safety Report 25734753 (Version 1)
Quarter: 2025Q3

REPORT INFORMATION
  Report Type: Spontaneous
  Country: US (occurrence: None)
  Receive Date: 20250827
  Receipt Date: 20250827
  Transmission Date: 20251020
  Serious: Yes (Hospitalization)
  Sender: FDA-CTU
  Company Number: None

PATIENT
  Age: 56 Year
  Sex: Male

DRUGS (1)
  1. ALCOHOL [Suspect]
     Active Substance: ALCOHOL
     Dosage: 300MG EVERY OTHER WEEK ?

REACTIONS (2)
  - Rash [None]
  - Product dose omission issue [None]
